FAERS Safety Report 8510031-8 (Version None)
Quarter: 2012Q2

REPORT INFORMATION
  Report Type: 
  Country: None (occurrence: None)
  Receive Date: 20120405
  Receipt Date: 20080923
  Transmission Date: 20120825
  Serious: Yes (Disabling)
  Sender: FDA-Public Use
  Company Number: PHEH2008US07803

PATIENT
  Age: 93 Year
  Sex: Female
  Weight: 52.6 kg

DRUGS (12)
  1. ANTIVERT ^PFIZER^ (MECLOZINE HYDROCHLORIDE) [Concomitant]
  2. ATENOLOL [Concomitant]
  3. MULTI-VITAMINS [Concomitant]
  4. POTASSIUM CHLORIDE [Concomitant]
  5. VITAMIN B6 [Concomitant]
  6. IBUPROFEN [Concomitant]
  7. CYMBALTA [Concomitant]
  8. DYAZIDE [Concomitant]
  9. ASCORBIC ACID [Concomitant]
  10. RECLAST [Suspect]
     Indication: OSTEOPOROSIS
     Dosage: 5 MG, YEARLY, INTRAVENOUS
     Route: 042
     Dates: start: 20080721
  11. CALCIUM WITH VITAMIN D (CALCIUM PHOSPHATE, CALCIUM SODIUM LACTATE, ERG [Concomitant]
  12. NASONEX [Concomitant]

REACTIONS (5)
  - RED CELL DISTRIBUTION WIDTH INCREASED [None]
  - MYALGIA [None]
  - ARTHRALGIA [None]
  - PAIN [None]
  - BONE PAIN [None]
